FAERS Safety Report 21085998 (Version 1)
Quarter: 2022Q3

REPORT INFORMATION
  Report Type: Spontaneous
  Country: IS (occurrence: IS)
  Receive Date: 20220715
  Receipt Date: 20220715
  Transmission Date: 20221027
  Serious: Yes (Hospitalization)
  Sender: FDA-Public Use
  Company Number: None

PATIENT
  Age: 28 Year
  Sex: Male

DRUGS (1)
  1. CUTAQUIG [Suspect]
     Active Substance: HUMAN IMMUNOGLOBULIN G
     Indication: Product used for unknown indication
     Dosage: GOT THREE DOSES (26/4, 03/05 AND 10/05)
     Route: 058

REACTIONS (4)
  - Inflammation [Unknown]
  - Pruritus [Unknown]
  - Skin tightness [Unknown]
  - Erythema [Unknown]
